FAERS Safety Report 19133955 (Version 1)
Quarter: 2021Q2

REPORT INFORMATION
  Report Type: Spontaneous
  Country: NL (occurrence: NL)
  Receive Date: 20210414
  Receipt Date: 20210414
  Transmission Date: 20210717
  Serious: Yes (Death, Hospitalization, Other)
  Sender: FDA-Public Use
  Company Number: NL-TEVA-2021-NL-1900014

PATIENT
  Age: 62 Year
  Sex: Male

DRUGS (5)
  1. IPILIMUMAB [Suspect]
     Active Substance: IPILIMUMAB
     Indication: METASTATIC RENAL CELL CARCINOMA
     Dosage: RECEIVED 3?WEEKLY FIRST?LINE TREATMENT
     Route: 065
  2. PREDNISOLONE. [Suspect]
     Active Substance: PREDNISOLONE
     Indication: NEPHRITIS
     Route: 065
  3. NIVOLUMAB [Suspect]
     Active Substance: NIVOLUMAB
     Indication: METASTATIC RENAL CELL CARCINOMA
     Dosage: RECEIVED 3?WEEKLY FIRST?LINE TREATMENT
     Route: 065
  4. NIVOLUMAB [Suspect]
     Active Substance: NIVOLUMAB
     Dosage: RECEIVED AS MAINTENANCE TREATMENT
     Route: 065
  5. PREDNISOLONE. [Suspect]
     Active Substance: PREDNISOLONE
     Dosage: 60 MILLIGRAM DAILY;
     Route: 065
     Dates: start: 2020

REACTIONS (3)
  - Rebound effect [Unknown]
  - Nephritis [Recovering/Resolving]
  - Renal failure [Unknown]

NARRATIVE: CASE EVENT DATE: 2020
